FAERS Safety Report 8976417 (Version 1)
Quarter: 2012Q4

REPORT INFORMATION
  Report Type: 
  Country: CH (occurrence: CH)
  Receive Date: 20121220
  Receipt Date: 20121220
  Transmission Date: 20130627
  Serious: Yes (Disabling)
  Sender: FDA-Public Use
  Company Number: CH-JNJFOC-20121208093

PATIENT
  Age: 69 Year
  Sex: Female
  Weight: 67 kg

DRUGS (12)
  1. XARELTO [Suspect]
     Indication: THROMBOSIS PROPHYLAXIS
     Route: 048
     Dates: start: 20120816, end: 20120826
  2. XARELTO [Suspect]
     Indication: MENISCUS REMOVAL
     Route: 048
     Dates: start: 20120816, end: 20120826
  3. METHOTREXATE SODIUM [Suspect]
     Indication: RHEUMATOID ARTHRITIS
     Route: 040
     Dates: start: 20120514
  4. METHOTREXATE SODIUM [Suspect]
     Indication: RHEUMATOID ARTHRITIS
     Route: 040
     Dates: start: 20120912
  5. METHOTREXATE SODIUM [Suspect]
     Indication: RHEUMATOID ARTHRITIS
     Route: 040
     Dates: start: 20120905, end: 20120905
  6. METAMIZOLE [Concomitant]
     Indication: ANTIINFLAMMATORY THERAPY
     Route: 048
  7. METAMIZOLE [Concomitant]
     Indication: ANTIPYRESIS
     Route: 048
  8. METAMIZOLE [Concomitant]
     Indication: ANALGESIC THERAPY
     Route: 048
  9. CANDESARTAN CILEXETIL W/HYDROCHLOROTHIAZIDE [Concomitant]
     Indication: ESSENTIAL HYPERTENSION
     Route: 048
  10. OPTIFEN [Concomitant]
     Indication: ANTIINFLAMMATORY THERAPY
     Route: 048
  11. OPTIFEN [Concomitant]
     Indication: ANTIPYRESIS
     Route: 048
  12. OPTIFEN [Concomitant]
     Indication: ANALGESIC THERAPY
     Route: 048

REACTIONS (3)
  - Hepatocellular injury [Recovering/Resolving]
  - Fatigue [Recovered/Resolved]
  - Decreased appetite [Recovered/Resolved]
